FAERS Safety Report 9769449 (Version 2)
Quarter: 2013Q4

REPORT INFORMATION
  Report Type: Report from Study
  Country: IN (occurrence: IN)
  Receive Date: 20131218
  Receipt Date: 20131218
  Transmission Date: 20140711
  Serious: Yes (Hospitalization)
  Sender: FDA-Public Use
  Company Number: PHHY2013IN080038

PATIENT
  Sex: Female

DRUGS (2)
  1. GLIVEC [Suspect]
     Indication: CHRONIC MYELOID LEUKAEMIA
     Dosage: 400 MG
  2. GLIVEC [Suspect]
     Dosage: 600 MG

REACTIONS (3)
  - Haemorrhagic diathesis [Unknown]
  - Pyrexia [Unknown]
  - Therapeutic response decreased [Unknown]
